FAERS Safety Report 20737870 (Version 1)
Quarter: 2022Q2

REPORT INFORMATION
  Report Type: Report from Study
  Country: AU (occurrence: AU)
  Receive Date: 20220422
  Receipt Date: 20220422
  Transmission Date: 20220720
  Serious: Yes (Other)
  Sender: FDA-Public Use
  Company Number: AU-SUN PHARMACEUTICAL INDUSTRIES LTD-2022RR-333985

PATIENT
  Age: 58 Year
  Sex: Female

DRUGS (5)
  1. PREDNISOLONE [Suspect]
     Active Substance: PREDNISOLONE
     Indication: Immunodeficiency common variable
     Dosage: UNK
     Route: 065
     Dates: start: 2016, end: 2021
  2. CYCLOSPORINE [Suspect]
     Active Substance: CYCLOSPORINE
     Indication: Immunodeficiency common variable
     Dosage: UNK
     Route: 065
     Dates: start: 2016, end: 2021
  3. EVEROLIMUS [Concomitant]
     Active Substance: EVEROLIMUS
     Indication: Immunodeficiency common variable
     Dosage: UNK
     Route: 065
  4. GANCICLOVIR [Concomitant]
     Active Substance: GANCICLOVIR
     Indication: Cytomegalovirus infection
     Dosage: UNK
     Route: 065
  5. VALGANCICLOVIR [Concomitant]
     Active Substance: VALGANCICLOVIR
     Indication: Cytomegalovirus infection
     Dosage: UNK
     Route: 065

REACTIONS (1)
  - Viraemia [Unknown]

NARRATIVE: CASE EVENT DATE: 20170101
